FAERS Safety Report 6506055-2 (Version None)
Quarter: 2009Q4

REPORT INFORMATION
  Report Type: 
  Country: None (occurrence: None)
  Receive Date: 20091218
  Receipt Date: 20091208
  Transmission Date: 20100525
  Serious: Yes (Hospitalization)
  Sender: FDA-Public Use
  Company Number: CN-JNJFOC-20091202581

PATIENT
  Age: 21 Month
  Sex: Male
  Weight: 12 kg

DRUGS (2)
  1. INFANTS TYLENOL [Suspect]
     Route: 048
     Dates: start: 20091207, end: 20091207
  2. INFANTS TYLENOL [Suspect]
     Indication: PYREXIA
     Route: 048
     Dates: start: 20091207, end: 20091207

REACTIONS (10)
  - BLOOD GLUCOSE INCREASED [None]
  - BLOOD SODIUM DECREASED [None]
  - CARBON DIOXIDE DECREASED [None]
  - CONDITION AGGRAVATED [None]
  - LYMPHOCYTE PERCENTAGE DECREASED [None]
  - MEAN CELL HAEMOGLOBIN CONCENTRATION DECREASED [None]
  - MEAN CELL VOLUME DECREASED [None]
  - MUSCLE TWITCHING [None]
  - OXYGEN SATURATION DECREASED [None]
  - PALLOR [None]
